FAERS Safety Report 8000711-5 (Version None)
Quarter: 2011Q4

REPORT INFORMATION
  Report Type: 
  Country: None (occurrence: None)
  Receive Date: 20111222
  Receipt Date: 20111212
  Transmission Date: 20120403
  Serious: Yes (Hospitalization)
  Sender: FDA-Public Use
  Company Number: CA-JNJFOC-20111206693

PATIENT
  Sex: Female
  Weight: 60 kg

DRUGS (2)
  1. METHOTREXATE [Concomitant]
  2. REMICADE [Suspect]
     Indication: COLITIS ULCERATIVE
     Dosage: 28 INFUSION TO DATE
     Route: 042

REACTIONS (1)
  - HAEMATEMESIS [None]
